FAERS Safety Report 11812290 (Version 2)
Quarter: 2015Q4

REPORT INFORMATION
  Report Type: Report from Study
  Country: US (occurrence: US)
  Receive Date: 20151208
  Receipt Date: 20151211
  Transmission Date: 20160305
  Serious: Yes (Other)
  Sender: FDA-Public Use
  Company Number: US-009507513-1512USA004485

PATIENT

DRUGS (3)
  1. REBETOL [Suspect]
     Active Substance: RIBAVIRIN
     Indication: CHRONIC HEPATITIS C
     Dosage: 1000 MG WITH BODY WEIGHT {75 KG AND 1200 MG WITH BODY WEIGHT }75 KG
     Route: 048
  2. SOFOSBUVIR [Suspect]
     Active Substance: SOFOSBUVIR
     Indication: CHRONIC HEPATITIS C
  3. VELPATASVIR [Suspect]
     Active Substance: VELPATASVIR
     Indication: CHRONIC HEPATITIS C

REACTIONS (22)
  - Infectious colitis [Unknown]
  - Escherichia infection [Unknown]
  - Sepsis [Unknown]
  - Hip fracture [Unknown]
  - Haematemesis [Unknown]
  - Duodenal ulcer perforation [Unknown]
  - Hyponatraemia [Unknown]
  - Pleural effusion [Unknown]
  - Seizure [Unknown]
  - Hepatic encephalopathy [Unknown]
  - Ileus [Unknown]
  - Rhabdomyolysis [Unknown]
  - Syncope [Unknown]
  - Device related infection [Unknown]
  - Dyspnoea [Unknown]
  - Ascites [Unknown]
  - Hyperkalaemia [Unknown]
  - Skin ulcer [Unknown]
  - Bacteraemia [Unknown]
  - Urinary tract infection [Unknown]
  - Cellulitis [Unknown]
  - Anaemia [Unknown]
